FAERS Safety Report 7131519 (Version 11)
Quarter: 2014Q1

REPORT INFORMATION
  Report Type: Spontaneous
  Country: US (occurrence: US)
  Receive Date: 20090925
  Receipt Date: 20140121
  Transmission Date: 20141002
  Serious: Yes (Death, Hospitalization, Other)
  Sender: FDA-Public Use
  Company Number: PHEH2009US11085

PATIENT
  Age: 38 Year
  Sex: Female

DRUGS (56)
  1. METAMUCIL [Concomitant]
  2. DOCUSATE [Concomitant]
  3. MILK OF MAGNESIA [Concomitant]
  4. LACTULOSE [Concomitant]
  5. PAXIL [Concomitant]
  6. ACETAMINOPHEN [Concomitant]
  7. MAALOX                                  /USA/ [Concomitant]
  8. AMBIEN [Concomitant]
  9. DILAUDID [Concomitant]
  10. ATIVAN [Concomitant]
  11. INAPSINE [Concomitant]
  12. MAGNESIUM CITRATE [Concomitant]
  13. TORADOL [Concomitant]
  14. DULCOLAX [Concomitant]
  15. ADRIAMYCIN [Concomitant]
  16. CYTOXAN [Concomitant]
  17. TAXOL [Concomitant]
  18. CARBOPLATIN [Concomitant]
  19. HERCEPTIN ^GENENTECH^ [Concomitant]
  20. ARIMIDEX ^ASTRAZENECA^ [Concomitant]
  21. MEGACE [Concomitant]
  22. VICODIN [Concomitant]
  23. METHADONE HYDROCHLORIDE [Concomitant]
  24. HUMALOG [Concomitant]
  25. PROMETHAZINE HYDROCHLORIDE [Concomitant]
     Dosage: 25 MG, QID
     Route: 048
  26. CLONAZEPAM [Concomitant]
     Dosage: 0.5 MG, QD
  27. IBUPROFEN [Concomitant]
     Dosage: 800 MG, TID
  28. GABAPENTIN [Concomitant]
     Dosage: 600 MG, TID
  29. SENNA-GEN [Concomitant]
  30. LANTUS [Concomitant]
  31. KLOR-CON [Concomitant]
  32. LISINOPRIL [Concomitant]
     Dosage: 10 MG, QD
     Route: 048
  33. BUPROPION HYDROCHLORIDE [Concomitant]
     Dosage: 150 MG, QD
     Route: 048
  34. GLIPIZIDE [Concomitant]
     Dosage: 10 MG, QD
     Route: 048
  35. TYKERB [Concomitant]
  36. XELODA [Concomitant]
  37. PREDNISONE [Concomitant]
  38. ZESTRIL [Concomitant]
  39. NEURONTIN [Concomitant]
     Dosage: 600 MG, TID
     Route: 048
  40. BUPIVACAINE [Concomitant]
  41. DURAGESIC [Concomitant]
  42. ROZEREM [Concomitant]
  43. AMITRIPTYLINE [Concomitant]
  44. LIDODERM [Concomitant]
  45. WELLBUTRIN [Concomitant]
  46. DOLOPHINE [Concomitant]
  47. ZOMETA [Suspect]
     Indication: BREAST CANCER METASTATIC
     Route: 042
     Dates: end: 200906
  48. MAGNESIUM SULFATE [Concomitant]
  49. FENTANYL [Concomitant]
  50. PANTOPRAZOLE [Concomitant]
  51. DEXAMETHASONE [Concomitant]
  52. METOCLOPRAMIDE [Concomitant]
  53. SENNOSIDE [Concomitant]
  54. CIPROFLOXACIN [Concomitant]
  55. ANASTROZOLE [Concomitant]
  56. POTASSIUM CHLORIDE [Concomitant]

REACTIONS (78)
  - Death [Fatal]
  - Malignant pleural effusion [Recovering/Resolving]
  - Dyspnoea [Unknown]
  - Hyponatraemia [Unknown]
  - Febrile neutropenia [Unknown]
  - Serratia sepsis [Unknown]
  - Hypokalaemia [Unknown]
  - Musculoskeletal pain [Not Recovered/Not Resolved]
  - Back pain [Unknown]
  - Pelvic pain [Unknown]
  - Osteonecrosis of jaw [Unknown]
  - Injury [Unknown]
  - Pain [Unknown]
  - Anxiety [Unknown]
  - Anhedonia [Unknown]
  - Mouth ulceration [Unknown]
  - Impaired healing [Unknown]
  - Bone disorder [Unknown]
  - Pancytopenia [Unknown]
  - Osteosclerosis [Unknown]
  - Osteoarthritis [Unknown]
  - Neoplasm progression [Unknown]
  - Malignant neoplasm progression [Unknown]
  - Metastases to liver [Unknown]
  - Metastases to lung [Unknown]
  - Adnexa uteri mass [Unknown]
  - Metastases to ovary [Unknown]
  - Deep vein thrombosis [Unknown]
  - Pleural fibrosis [Unknown]
  - Depression [Unknown]
  - Type 2 diabetes mellitus [Unknown]
  - Spinal column stenosis [Unknown]
  - Pneumonia [Unknown]
  - Respiratory failure [Unknown]
  - Pleural effusion [Unknown]
  - Hepatic steatosis [Unknown]
  - Device related infection [Unknown]
  - Otitis media [Unknown]
  - C-reactive protein increased [Unknown]
  - Red blood cell sedimentation rate increased [Unknown]
  - Rubber sensitivity [Unknown]
  - Pyrexia [Unknown]
  - Constipation [Unknown]
  - Dyspepsia [Unknown]
  - Thrombocytosis [Unknown]
  - Vomiting [Unknown]
  - Abdominal pain [Unknown]
  - Erythema [Unknown]
  - Urinary tract infection [Unknown]
  - Dehydration [Unknown]
  - Nausea [Unknown]
  - Obesity [Unknown]
  - Otitis externa [Unknown]
  - Thyroid disorder [Unknown]
  - Ingrowing nail [Unknown]
  - Hypertension [Unknown]
  - Insomnia [Unknown]
  - Blood creatine phosphokinase MB increased [Unknown]
  - Impetigo [Unknown]
  - Pain in extremity [Unknown]
  - Dyspnoea exertional [Unknown]
  - Upper respiratory tract infection [Unknown]
  - Electrolyte imbalance [Unknown]
  - Gastrooesophageal reflux disease [Unknown]
  - Dysphagia [Unknown]
  - Sinusitis [Unknown]
  - Cough [Unknown]
  - Ascites [Unknown]
  - Skin ulcer [Unknown]
  - Gout [Unknown]
  - Paraesthesia [Unknown]
  - Hypoaesthesia [Unknown]
  - Hepatomegaly [Unknown]
  - Lymphadenopathy [Unknown]
  - Metastases to spine [Unknown]
  - Hepatic cirrhosis [Unknown]
  - Hepatic calcification [Unknown]
  - Atelectasis [Unknown]
